FAERS Safety Report 20039410 (Version 1)
Quarter: 2021Q4

REPORT INFORMATION
  Report Type: Spontaneous
  Country: US (occurrence: US)
  Receive Date: 20211105
  Receipt Date: 20211105
  Transmission Date: 20220303
  Serious: Yes (Death, Hospitalization, Disabling, Other)
  Sender: FDA-Public Use
  Company Number: US-GILEAD-2021-0555531

PATIENT
  Age: 73 Year
  Sex: Male

DRUGS (1)
  1. YESCARTA [Suspect]
     Active Substance: AXICABTAGENE CILOLEUCEL
     Indication: Diffuse large B-cell lymphoma
     Dosage: IV INFUSION ONCE
     Route: 042
     Dates: start: 20210907, end: 20210907

REACTIONS (2)
  - Neurotoxicity [Fatal]
  - Central nervous system infection [Fatal]

NARRATIVE: CASE EVENT DATE: 20210907
